FAERS Safety Report 24037615 (Version 1)
Quarter: 2024Q3

REPORT INFORMATION
  Report Type: Spontaneous
  Country: ES (occurrence: ES)
  Receive Date: 20240702
  Receipt Date: 20240702
  Transmission Date: 20241017
  Serious: Yes (Hospitalization, Other)
  Sender: CELLTRION
  Company Number: ES-CELLTRION INC.-2024ES015658

PATIENT

DRUGS (5)
  1. BEVACIZUMAB [Suspect]
     Active Substance: BEVACIZUMAB
     Indication: Colorectal cancer metastatic
     Dosage: 5 MG/KG, CYCLE (INFUSION, REPEATED EVERY 14 DAYS (WITH A MAXIMUM DURATION OF 21 DAYS), CYCLIC)
     Route: 042
  2. FLUOROURACIL [Suspect]
     Active Substance: FLUOROURACIL
     Indication: Colorectal cancer metastatic
     Dosage: 2400 MG/M2, CYCLE (2400 MG/M2, CYCLIC, CONTINUOUS INTRAVENOUS INFUSION OVER 46 H)
     Route: 042
  3. FLUOROURACIL [Suspect]
     Active Substance: FLUOROURACIL
     Dosage: 400 MG/M2, CYCLE (400 MG/M2, CYCLIC OVER 2-4 MINUTES)
     Route: 040
  4. OXALIPLATIN [Suspect]
     Active Substance: OXALIPLATIN
     Indication: Colorectal cancer metastatic
     Dosage: 85 MG/M2, CYCLE (REPEATED EVERY 14 DAYS (WITH A MAXIMUM DURATION OF 21 DAYS))
     Route: 042
  5. LEUCOVORIN [Suspect]
     Active Substance: LEUCOVORIN\LEUCOVORIN CALCIUM
     Indication: Colorectal cancer metastatic
     Dosage: 400 MG/M2, CYCLE (400 MG/M2, CYCLIC, REPEATED EVERY 14 DAYS (WITH A MAXIMUM DURATION OF 21 DAYS))
     Route: 042

REACTIONS (1)
  - Paresis [Not Recovered/Not Resolved]

NARRATIVE: CASE EVENT DATE: 20200805
